FAERS Safety Report 10579995 (Version 6)
Quarter: 2015Q1

REPORT INFORMATION
  Report Type: Spontaneous
  Country: SE (occurrence: SE)
  Receive Date: 20141112
  Receipt Date: 20150311
  Transmission Date: 20150720
  Serious: Yes (Death, Hospitalization, Other)
  Sender: FDA-Public Use
  Company Number: SE-BAYER-2014-164219

PATIENT
  Age: 78 Year
  Sex: Male
  Weight: 79 kg

DRUGS (6)
  1. XOFIGO [Suspect]
     Active Substance: RADIUM RA-223 DICHLORIDE
     Indication: PROSTATE CANCER STAGE IV
     Dosage: DAILY DOSE 3998 KBQ
     Route: 042
     Dates: start: 20140923, end: 20140923
  2. OXYCONTIN [Concomitant]
     Active Substance: OXYCODONE HYDROCHLORIDE
  3. AZOPT [Concomitant]
     Active Substance: BRINZOLAMIDE
  4. ENANTON [Concomitant]
     Dosage: EVERY 24 WEEKS
     Dates: start: 20140128
  5. PANODIL [Concomitant]
     Active Substance: ACETAMINOPHEN
  6. GANFORT [Concomitant]
     Active Substance: BIMATOPROST\TIMOLOL

REACTIONS (7)
  - Multi-organ failure [Fatal]
  - Sepsis [None]
  - Vomiting [None]
  - Pancytopenia [Fatal]
  - Bone marrow toxicity [Fatal]
  - Nausea [None]
  - Febrile neutropenia [None]

NARRATIVE: CASE EVENT DATE: 201409
